FAERS Safety Report 5849804-9 (Version None)
Quarter: 2008Q3

REPORT INFORMATION
  Report Type: 
  Country: None (occurrence: None)
  Receive Date: 20080815
  Receipt Date: 20080229
  Transmission Date: 20090109
  Serious: No
  Sender: FDA-Public Use
  Company Number: 000#5#2008-00051

PATIENT
  Age: 53 Year
  Sex: Female

DRUGS (7)
  1. NEUPRO [Suspect]
     Indication: FIBROMYALGIA
     Dosage: TRANSDERMAL
     Route: 062
     Dates: start: 20080206, end: 20080214
  2. LANSOPRAZOLE [Concomitant]
  3. AMLODIPINE [Concomitant]
  4. HYDROCHLOROTHIAZIDE [Concomitant]
  5. OLMESARTAN MEDOXOMIL [Concomitant]
  6. FEXOFENADINE HCL [Concomitant]
  7. ZOLPIDEM TARTRATE [Concomitant]

REACTIONS (3)
  - NAUSEA [None]
  - SOMNOLENCE [None]
  - SUDDEN ONSET OF SLEEP [None]
